FAERS Safety Report 6279463-5 (Version None)
Quarter: 2009Q3

REPORT INFORMATION
  Report Type: 
  Country: None (occurrence: None)
  Receive Date: 20090723
  Receipt Date: 20090714
  Transmission Date: 20100115
  Serious: Yes (Hospitalization)
  Sender: FDA-Public Use
  Company Number: NL-CELGENEUS-114-21880-09070990

PATIENT
  Sex: Male
  Weight: 72 kg

DRUGS (9)
  1. REVLIMID [Suspect]
     Indication: MULTIPLE MYELOMA
     Route: 048
     Dates: start: 20090624, end: 20090713
  2. BORTEZOMIB [Suspect]
     Indication: MULTIPLE MYELOMA
     Route: 051
     Dates: start: 20090624, end: 20090708
  3. DEXAMETHASONE [Suspect]
     Indication: MULTIPLE MYELOMA
     Route: 048
     Dates: start: 20090624, end: 20090709
  4. ACENOCOUMAROL [Concomitant]
     Indication: PROPHYLAXIS
     Dosage: PRN
     Route: 048
     Dates: start: 20050401, end: 20090713
  5. METOPROLOL SUCCINATE [Concomitant]
     Indication: ATRIAL FIBRILLATION
     Route: 048
     Dates: start: 20060101, end: 20090713
  6. LANOXIN [Concomitant]
     Indication: ATRIAL FIBRILLATION
     Route: 048
     Dates: start: 20060101, end: 20090713
  7. ALFUSOCINE [Concomitant]
     Indication: PROPHYLAXIS
     Route: 048
     Dates: start: 20060514, end: 20090713
  8. ATROVENT [Concomitant]
     Route: 048
     Dates: start: 20090601, end: 20090713
  9. MAGNESIUM CHLORIDE [Concomitant]
     Indication: CONSTIPATION
     Route: 048
     Dates: start: 20090601, end: 20090713

REACTIONS (2)
  - DIZZINESS [None]
  - HYPERVENTILATION [None]
